FAERS Safety Report 17674813 (Version 1)
Quarter: 2020Q2

REPORT INFORMATION
  Report Type: Spontaneous
  Country: US (occurrence: US)
  Receive Date: 20200416
  Receipt Date: 20200416
  Transmission Date: 20200714
  Serious: No
  Sender: FDA-Public Use
  Company Number: US-ASTRAZENECA-2020SE48974

PATIENT

DRUGS (2)
  1. FASLODEX [Suspect]
     Active Substance: FULVESTRANT
     Indication: BREAST CANCER FEMALE
     Route: 030
     Dates: start: 20200329
  2. IBRANCE [Concomitant]
     Active Substance: PALBOCICLIB
     Route: 048

REACTIONS (2)
  - Mastitis [Unknown]
  - Abdominal discomfort [Unknown]
